FAERS Safety Report 6022491-5 (Version None)
Quarter: 2008Q4

REPORT INFORMATION
  Report Type: 
  Country: None (occurrence: None)
  Receive Date: 20081230
  Receipt Date: 20081218
  Transmission Date: 20090506
  Serious: Yes (Other)
  Sender: FDA-Public Use
  Company Number: PHHY2008JP26936

PATIENT
  Age: 82 Year
  Sex: Female

DRUGS (7)
  1. DIOVAN [Suspect]
     Indication: HYPERTENSION
     Dosage: 160 MG, QD
     Route: 048
     Dates: start: 20081010, end: 20081027
  2. ADALAT CC [Concomitant]
     Route: 048
  3. LASIX [Concomitant]
     Route: 048
  4. MAINTATE [Concomitant]
     Dosage: 5 MG, UNK
     Route: 048
     Dates: start: 20070510
  5. CRESTOR [Concomitant]
     Dosage: 2.5 MG, UNK
     Route: 048
     Dates: start: 20070524
  6. PENSELIN [Concomitant]
     Dosage: 75 MG, UNK
     Route: 048
     Dates: start: 20061102
  7. GASMOTIN [Concomitant]
     Dosage: 15 MG, UNK
     Route: 048
     Dates: start: 20070713

REACTIONS (1)
  - HYPOKALAEMIA [None]
